FAERS Safety Report 9031955 (Version 1)
Quarter: 2013Q1

REPORT INFORMATION
  Report Type: Spontaneous
  Country: US (occurrence: US)
  Receive Date: 20130125
  Receipt Date: 20130125
  Transmission Date: 20140127
  Serious: Yes (Other)
  Sender: FDA-Public Use
  Company Number: US-JNJFOC-20130108920

PATIENT
  Sex: 0

DRUGS (2)
  1. XARELTO [Suspect]
     Indication: FACTOR V LEIDEN MUTATION
     Route: 048
  2. COUMADIN [Concomitant]
     Route: 065

REACTIONS (2)
  - Deep vein thrombosis [Unknown]
  - Pulmonary embolism [Unknown]
